FAERS Safety Report 25023199 (Version 1)
Quarter: 2025Q1

REPORT INFORMATION
  Report Type: Spontaneous
  Country: US (occurrence: None)
  Receive Date: 20250227
  Receipt Date: 20250227
  Transmission Date: 20250408
  Serious: Yes (Other)
  Sender: FDA-CTU
  Company Number: None

PATIENT
  Age: 75 Year
  Sex: Male

DRUGS (1)
  1. ROSUVASTATIN [Suspect]
     Active Substance: ROSUVASTATIN
     Dosage: FREQUENCY : DAILY;?
     Route: 048

REACTIONS (4)
  - Brain fog [None]
  - Confusional state [None]
  - Somnolence [None]
  - Therapy change [None]

NARRATIVE: CASE EVENT DATE: 20250101
